FAERS Safety Report 4416206-1 (Version None)
Quarter: 2004Q3

REPORT INFORMATION
  Report Type: 
  Country: None (occurrence: None)
  Receive Date: 20040803
  Receipt Date: 20040720
  Transmission Date: 20050211
  Serious: Yes (Death)
  Sender: FDA-Public Use
  Company Number: US-JNJFOC-20040505671

PATIENT
  Age: 56 Year
  Sex: Female

DRUGS (2)
  1. DURAGESIC [Suspect]
     Indication: PAIN
     Dosage: 100 UG/HR, TRANSDERMAL
     Route: 062
     Dates: start: 20040101
  2. VICODIN [Concomitant]

REACTIONS (2)
  - DRUG TOXICITY [None]
  - OVERDOSE [None]
